FAERS Safety Report 21566670 (Version 1)
Quarter: 2022Q4

REPORT INFORMATION
  Report Type: Spontaneous
  Country: US (occurrence: None)
  Receive Date: 20221107
  Receipt Date: 20221107
  Transmission Date: 20230112
  Serious: Yes (Hospitalization)
  Sender: FDA-Public Use
  Company Number: None

PATIENT
  Age: 68 Year
  Sex: Female

DRUGS (3)
  1. DAPTOMYCIN [Suspect]
     Active Substance: DAPTOMYCIN
     Route: 042
  2. ATORVASTATIN [Suspect]
     Active Substance: ATORVASTATIN
     Route: 048
  3. CEFTRIAXONE [Suspect]
     Active Substance: CEFTRIAXONE

REACTIONS (5)
  - Blood creatine phosphokinase increased [None]
  - Myalgia [None]
  - Chromaturia [None]
  - Rhabdomyolysis [None]
  - Toxicity to various agents [None]

NARRATIVE: CASE EVENT DATE: 20221026
